FAERS Safety Report 9791675 (Version 4)
Quarter: 2014Q1

REPORT INFORMATION
  Report Type: Spontaneous
  Country: US (occurrence: US)
  Receive Date: 20140102
  Receipt Date: 20140305
  Transmission Date: 20141002
  Serious: No
  Sender: FDA-Public Use
  Company Number: US-009507513-1312USA012062

PATIENT
  Age: 20 Year
  Sex: Female
  Weight: 58.96 kg

DRUGS (2)
  1. NEXPLANON [Suspect]
     Indication: DYSMENORRHOEA
     Dosage: 68 MG; ONE ROD EVERY 3 YEARS
     Route: 059
     Dates: start: 20131227, end: 20131227
  2. NEXPLANON [Suspect]
     Dosage: 68 MG; ONE ROD EVERY 3 YEARS
     Route: 059
     Dates: start: 20131227

REACTIONS (5)
  - Menorrhagia [Unknown]
  - Device difficult to use [Recovered/Resolved]
  - Product quality control issue [Unknown]
  - Device expulsion [Recovered/Resolved]
  - Inappropriate schedule of drug administration [Unknown]
